FAERS Safety Report 6922545-2 (Version None)
Quarter: 2010Q3

REPORT INFORMATION
  Report Type: 
  Country: None (occurrence: None)
  Receive Date: 20100813
  Receipt Date: 20100805
  Transmission Date: 20110219
  Serious: Yes (Hospitalization, Other)
  Sender: FDA-Public Use
  Company Number: US-TEVA-243943USA

PATIENT
  Sex: Female

DRUGS (1)
  1. FAMOTIDINE 20 MG + 40 MG TABLETS [Suspect]
     Indication: GASTROOESOPHAGEAL REFLUX DISEASE
     Route: 048
     Dates: start: 20100601

REACTIONS (8)
  - ASTHMA [None]
  - CHEST DISCOMFORT [None]
  - COUGH [None]
  - FATIGUE [None]
  - INCREASED UPPER AIRWAY SECRETION [None]
  - LETHARGY [None]
  - PYREXIA [None]
  - THROAT TIGHTNESS [None]
